FAERS Safety Report 8591726-7 (Version None)
Quarter: 2012Q3

REPORT INFORMATION
  Report Type: 
  Country: None (occurrence: None)
  Receive Date: 20120814
  Receipt Date: 20120808
  Transmission Date: 20120928
  Serious: Yes (Hospitalization, Other)
  Sender: FDA-Public Use
  Company Number: PHHY2012BR069622

PATIENT
  Sex: Male
  Weight: 80 kg

DRUGS (6)
  1. EXELON [Suspect]
     Dosage: 2 MG/120 ML, UNK
     Route: 048
  2. EXELON [Suspect]
     Dosage: 9.5 MG, UNK
     Route: 062
  3. ANTIHYPERTENSIVE DRUGS [Suspect]
     Indication: HYPERTENSION
     Dosage: UNK UKN, UNK
  4. EXELON [Suspect]
     Dosage: 13.3 MG, UNK
     Route: 062
  5. EXELON [Suspect]
     Dosage: 2 MG/50 ML, UNK
     Route: 048
  6. EXELON [Suspect]
     Dosage: 4.6 MG, UNK
     Route: 062

REACTIONS (3)
  - WRIST FRACTURE [None]
  - ARTHRALGIA [None]
  - FALL [None]
